FAERS Safety Report 8936600 (Version 1)
Quarter: 2012Q4

REPORT INFORMATION
  Report Type: 
  Country: CA (occurrence: CA)
  Receive Date: 20121130
  Receipt Date: 20121130
  Transmission Date: 20130627
  Serious: Yes (Death, Hospitalization)
  Sender: FDA-Public Use
  Company Number: PHHY2012CA107152

PATIENT
  Sex: Male

DRUGS (1)
  1. SANDOSTATIN (OCTREOTIDE ACETATE) [Suspect]
     Indication: NEUROENDOCRINE TUMOUR
     Dosage: UNK UKN, BID
     Route: 058
     Dates: start: 20121102

REACTIONS (1)
  - Death [Fatal]
